FAERS Safety Report 11530361 (Version 2)
Quarter: 2015Q4

REPORT INFORMATION
  Report Type: Spontaneous
  Country: US (occurrence: US)
  Receive Date: 20150921
  Receipt Date: 20151012
  Transmission Date: 20160304
  Serious: No
  Sender: FDA-Public Use
  Company Number: US-GLAXOSMITHKLINE-US2015GSK124466

PATIENT
  Sex: Female

DRUGS (2)
  1. BUPROPION TABLET [Suspect]
     Active Substance: BUPROPION
     Indication: DEPRESSION
     Dosage: 300 MG, U
     Route: 065
     Dates: end: 201412
  2. BUPROPION HYDROCHLORIDE XL [Suspect]
     Active Substance: BUPROPION HYDROCHLORIDE

REACTIONS (6)
  - Thinking abnormal [Unknown]
  - Agitation [Unknown]
  - Adverse drug reaction [Unknown]
  - Insomnia [Unknown]
  - Aggression [Unknown]
  - Nervousness [Unknown]
